FAERS Safety Report 12532092 (Version 1)
Quarter: 2016Q3

REPORT INFORMATION
  Report Type: Spontaneous
  Country: FR (occurrence: FR)
  Receive Date: 20160706
  Receipt Date: 20160706
  Transmission Date: 20161109
  Serious: Yes (Other)
  Sender: FDA-Public Use
  Company Number: FR-TEVA-673904ISR

PATIENT
  Age: 58 Year
  Sex: Female

DRUGS (13)
  1. ARIPIPRAZOLE. [Suspect]
     Active Substance: ARIPIPRAZOLE
     Indication: SCHIZOPHRENIA
     Dosage: 10 MILLIGRAM DAILY;
  2. ARIPIPRAZOLE. [Interacting]
     Active Substance: ARIPIPRAZOLE
     Indication: SCHIZOPHRENIA
  3. MACROGOL [Concomitant]
     Active Substance: POLYETHYLENE GLYCOLS
     Indication: CONSTIPATION
  4. ZOPICLONE [Concomitant]
     Active Substance: ZOPICLONE
     Indication: SCHIZOPHRENIA
     Dosage: AS NEEDED
  5. TROPATEPINE [Interacting]
     Active Substance: TROPATEPINE
     Indication: EXTRAPYRAMIDAL DISORDER
     Dosage: 30 MILLIGRAM DAILY;
  6. CLOZAPINE. [Interacting]
     Active Substance: CLOZAPINE
     Indication: SCHIZOPHRENIA
     Dosage: 350 MILLIGRAM DAILY;
  7. PARACETAMOL [Concomitant]
     Active Substance: ACETAMINOPHEN
     Indication: HEADACHE
     Dosage: 3 TO 4 G/D
  8. NEFOPAM [Concomitant]
     Active Substance: NEFOPAM
     Indication: HAEMORRHOIDS
  9. CLOZAPINE. [Interacting]
     Active Substance: CLOZAPINE
     Indication: SCHIZOPHRENIA
     Dosage: 275 MILLIGRAM DAILY;
  10. HEPTAMINOL [Concomitant]
     Active Substance: HEPTAMINOL
     Indication: ORTHOSTATIC HYPOTENSION
  11. LORAZEPAM. [Concomitant]
     Active Substance: LORAZEPAM
     Indication: SCHIZOPHRENIA
  12. TROPATEPINE [Interacting]
     Active Substance: TROPATEPINE
     Indication: SCHIZOPHRENIA
     Dosage: 10 MILLIGRAM DAILY;
  13. TROPATEPINE [Interacting]
     Active Substance: TROPATEPINE
     Indication: SCHIZOPHRENIA
     Dosage: 15 MILLIGRAM DAILY;

REACTIONS (4)
  - Toxicity to various agents [Recovered/Resolved]
  - Hiatus hernia [Unknown]
  - Drug interaction [Unknown]
  - Gastrooesophageal reflux disease [Recovered/Resolved]
